FAERS Safety Report 4345374-5 (Version None)
Quarter: 2004Q2

REPORT INFORMATION
  Report Type: 
  Country: None (occurrence: None)
  Receive Date: 20040423
  Receipt Date: 20040317
  Transmission Date: 20050107
  Serious: Yes (Other)
  Sender: FDA-Public Use
  Company Number: US-BRISTOL-MYERS SQUIBB COMPANY-12534921

PATIENT
  Age: 53 Year
  Sex: Female
  Weight: 130 kg

DRUGS (6)
  1. ERBITUX [Suspect]
     Indication: COLON CANCER
     Dosage: 1ST INFUSION, ADMINISTERED OVER 2 HOURS. LAST INFUSION 15-APR-2004 (6TH CYCLE)
     Route: 042
     Dates: start: 20040311, end: 20040311
  2. BENADRYL [Concomitant]
     Indication: PREMEDICATION
     Route: 042
  3. SYNTHROID [Concomitant]
  4. LASIX [Concomitant]
  5. POTASSIUM [Concomitant]
  6. COPAXONE [Concomitant]

REACTIONS (3)
  - CHILLS [None]
  - STOMATITIS [None]
  - VAGINAL HAEMORRHAGE [None]
